FAERS Safety Report 15972696 (Version 2)
Quarter: 2020Q2

REPORT INFORMATION
  Report Type: Spontaneous
  Country: US (occurrence: US)
  Receive Date: 20190216
  Receipt Date: 20200504
  Transmission Date: 20200713
  Serious: No
  Sender: FDA-Public Use
  Company Number: US-009507513-1902USA001637

PATIENT
  Age: 49 Year
  Sex: Female

DRUGS (5)
  1. ASMANEX [Suspect]
     Active Substance: MOMETASONE FUROATE
     Indication: HYPERSENSITIVITY
     Dosage: ONCE DAILY BEFORE BED/ONE INHALATION DAILY
     Route: 055
  2. ASMANEX [Suspect]
     Active Substance: MOMETASONE FUROATE
     Dosage: ONCE DAILY BEFORE BED/ONE INHALATION DAILY
     Route: 055
     Dates: start: 20200317, end: 20200402
  3. ASMANEX [Suspect]
     Active Substance: MOMETASONE FUROATE
     Indication: ASTHMA
     Dosage: ONCE DAILY BEFORE BED/ONE INHALATION DAILY
     Route: 055
  4. ASMANEX [Suspect]
     Active Substance: MOMETASONE FUROATE
     Dosage: ONCE DAILY BEFORE BED/ONE INHALATION DAILY
     Route: 055
     Dates: start: 20200403
  5. PROAIR HFA [Concomitant]
     Active Substance: ALBUTEROL SULFATE
     Indication: HYPERSENSITIVITY
     Dosage: AS NEEDED (WHEN SHE DOES USE IT, SHE DOES NOT USE IT EVERY DAY OR EVEN MULTIPLE TIMES A DAY) DURING

REACTIONS (13)
  - Drug dose omission by device [Unknown]
  - Poor quality device used [Unknown]
  - Product use in unapproved indication [Unknown]
  - Incorrect dose administered by device [Unknown]
  - Visual impairment [Not Recovered/Not Resolved]
  - Chest discomfort [Unknown]
  - Dyspnoea [Recovered/Resolved]
  - Expired product administered [Unknown]
  - Poor quality device used [Unknown]
  - Dyspnoea [Recovered/Resolved]
  - Product quality issue [Unknown]
  - Product quality issue [Unknown]
  - Dyspnoea [Recovering/Resolving]

NARRATIVE: CASE EVENT DATE: 20190202
